FAERS Safety Report 7028297-2 (Version None)
Quarter: 2010Q4

REPORT INFORMATION
  Report Type: 
  Country: None (occurrence: None)
  Receive Date: 20101005
  Receipt Date: 20100927
  Transmission Date: 20110411
  Serious: Yes (Other)
  Sender: FDA-Public Use
  Company Number: BR-ROCHE-684601

PATIENT
  Sex: Female

DRUGS (3)
  1. MYCOPHENOLATE MOFETIL [Suspect]
     Route: 048
     Dates: start: 20051203
  2. BELATACEPT [Suspect]
     Dosage: MORE INTENSIVE DOSING REGIMEN
     Route: 042
     Dates: start: 20051201
  3. PREDNISONE [Suspect]
     Route: 048
     Dates: start: 20080806

REACTIONS (1)
  - ORAL DISORDER [None]
